FAERS Safety Report 11662516 (Version 1)
Quarter: 2015Q4

REPORT INFORMATION
  Report Type: Spontaneous
  Country: US (occurrence: US)
  Receive Date: 20151027
  Receipt Date: 20151027
  Transmission Date: 20160304
  Serious: No
  Sender: FDA-Public Use
  Company Number: US-MEDA-2013060036

PATIENT
  Age: 61 Year
  Sex: Male
  Weight: 73 kg

DRUGS (8)
  1. ASTEPRO [Suspect]
     Active Substance: AZELASTINE HYDROCHLORIDE
     Indication: NASOPHARYNGITIS
     Dates: start: 20130511, end: 20130511
  2. ASTEPRO [Suspect]
     Active Substance: AZELASTINE HYDROCHLORIDE
     Indication: SINUSITIS
     Dates: start: 20130511, end: 20130511
  3. ASTEPRO [Suspect]
     Active Substance: AZELASTINE HYDROCHLORIDE
     Indication: OROPHARYNGEAL PAIN
     Dates: start: 20130511, end: 20130511
  4. ASTEPRO [Suspect]
     Active Substance: AZELASTINE HYDROCHLORIDE
     Indication: COUGH
     Dates: start: 20130512, end: 20130512
  5. ASTEPRO [Suspect]
     Active Substance: AZELASTINE HYDROCHLORIDE
     Indication: NASOPHARYNGITIS
     Dates: start: 20130512, end: 20130512
  6. ASTEPRO [Suspect]
     Active Substance: AZELASTINE HYDROCHLORIDE
     Indication: COUGH
     Dates: start: 20130511, end: 20130511
  7. ASTEPRO [Suspect]
     Active Substance: AZELASTINE HYDROCHLORIDE
     Indication: SINUSITIS
     Dates: start: 20130512, end: 20130512
  8. ASTEPRO [Suspect]
     Active Substance: AZELASTINE HYDROCHLORIDE
     Indication: OROPHARYNGEAL PAIN
     Dates: start: 20130512, end: 20130512

REACTIONS (4)
  - Sneezing [Unknown]
  - Product use issue [Recovered/Resolved]
  - Drug administration error [Unknown]
  - Drug ineffective for unapproved indication [Not Recovered/Not Resolved]

NARRATIVE: CASE EVENT DATE: 20130511
